FAERS Safety Report 10007282 (Version 4)
Quarter: 2014Q3

REPORT INFORMATION
  Report Type: Spontaneous
  Country: US (occurrence: None)
  Receive Date: 20140311
  Receipt Date: 20140710
  Transmission Date: 20150326
  Serious: Yes (Other)
  Sender: FDA-Public Use
  Company Number: ADR-2014-00381

PATIENT
  Sex: Female

DRUGS (1)
  1. BACLOFEN INTRATHECAL 2000MCG/ML [Suspect]
     Active Substance: BACLOFEN
     Indication: MUSCLE SPASTICITY
     Dosage: 200 MCG/DAY
     Dates: start: 20090406

REACTIONS (11)
  - Scoliosis [None]
  - Muscle spasticity [None]
  - Device issue [None]
  - Device dislocation [None]
  - Drug withdrawal syndrome [None]
  - Nervous system disorder [None]
  - Gait disturbance [None]
  - Abnormal behaviour [None]
  - Muscle tightness [None]
  - Hypertonia [None]
  - Malaise [None]
